FAERS Safety Report 16534760 (Version 1)
Quarter: 2019Q3

REPORT INFORMATION
  Report Type: Spontaneous
  Country: US (occurrence: US)
  Receive Date: 20190705
  Receipt Date: 20190705
  Transmission Date: 20191004
  Serious: Yes (Other)
  Sender: FDA-Public Use
  Company Number: US-AMGEN-USASP2019104094

PATIENT
  Age: 78 Year
  Sex: Female

DRUGS (1)
  1. REPATHA [Suspect]
     Active Substance: EVOLOCUMAB
     Indication: TYPE IIA HYPERLIPIDAEMIA
     Dosage: UNK
     Route: 065

REACTIONS (11)
  - Generalised oedema [Unknown]
  - Constipation [Unknown]
  - Dysphonia [Unknown]
  - Oropharyngeal pain [Unknown]
  - Chills [Unknown]
  - Aortic arteriosclerosis [Unknown]
  - Coronary arterial stent insertion [Unknown]
  - Fatigue [Unknown]
  - Vomiting [Unknown]
  - Scab [Unknown]
  - Myalgia [Unknown]
